FAERS Safety Report 6025275-7 (Version None)
Quarter: 2008Q4

REPORT INFORMATION
  Report Type: 
  Country: None (occurrence: None)
  Receive Date: 20081231
  Receipt Date: 20081219
  Transmission Date: 20090506
  Serious: Yes (Hospitalization, Other)
  Sender: FDA-Public Use
  Company Number: PHHY2008TR31215

PATIENT
  Age: 77 Year
  Sex: Female

DRUGS (3)
  1. EXFORGE [Suspect]
     Indication: HYPERTENSION
     Dosage: 160/5
  2. PRAMIPEXOLE DIHYDROCHLORIDE [Concomitant]
     Dosage: 1.5 MG, TID
  3. PIRACETAM [Concomitant]
     Dosage: 800 MG, TID

REACTIONS (5)
  - AGITATION [None]
  - HALLUCINATION [None]
  - HEPATIC ENZYME INCREASED [None]
  - HEPATIC FAILURE [None]
  - ISCHAEMIC STROKE [None]
